FAERS Safety Report 9359217 (Version 2)
Quarter: 2013Q3

REPORT INFORMATION
  Report Type: Spontaneous
  Country: US (occurrence: US)
  Receive Date: 20130620
  Receipt Date: 20130731
  Transmission Date: 20140515
  Serious: No
  Sender: FDA-Public Use
  Company Number: US-009507513-1305USA010164

PATIENT
  Age: 40 Year
  Sex: Female
  Weight: 63.49 kg

DRUGS (6)
  1. CLARITIN-D-24 [Suspect]
     Indication: SNEEZING
     Dosage: 10 MG, ONCE
     Route: 048
     Dates: start: 20130509, end: 20130509
  2. CLARITIN-D-24 [Suspect]
     Indication: THROAT IRRITATION
     Dosage: 10 MG, ONCE
     Route: 048
     Dates: start: 201305, end: 201305
  3. CLARITIN-D-24 [Suspect]
     Indication: EYE PRURITUS
  4. CLARITIN-D-24 [Suspect]
     Indication: RHINORRHOEA
  5. CLARITIN-D-24 [Suspect]
     Indication: NASAL CONGESTION
  6. CLARITIN-D-24 [Suspect]
     Indication: MEDICAL OBSERVATION

REACTIONS (2)
  - Rhinorrhoea [Unknown]
  - Drug ineffective [Unknown]
